FAERS Safety Report 9118805 (Version 1)
Quarter: 2013Q1

REPORT INFORMATION
  Report Type: Spontaneous
  Country: US (occurrence: None)
  Receive Date: 20130221
  Receipt Date: 20130221
  Transmission Date: 20140127
  Serious: Yes (Life-Threatening, Hospitalization)
  Sender: FDA-Public Use
  Company Number: None

PATIENT
  Age: 69 Year
  Sex: Male
  Weight: 106.6 kg

DRUGS (1)
  1. ONGLYZA 5MG BRISTOL-MYERS SQUIBB [Suspect]
     Indication: DIABETES MELLITUS
     Route: 048
     Dates: start: 20120418, end: 20120608

REACTIONS (1)
  - Agranulocytosis [None]
